FAERS Safety Report 4839093-6 (Version None)
Quarter: 2005Q4

REPORT INFORMATION
  Report Type: 
  Country: None (occurrence: None)
  Receive Date: 20051129
  Receipt Date: 20051122
  Transmission Date: 20060501
  Serious: Yes (Hospitalization)
  Sender: FDA-Public Use
  Company Number: US-GLAXOSMITHKLINE-A0583506A

PATIENT
  Age: 81 Year
  Sex: Female

DRUGS (5)
  1. ADVAIR DISKUS 100/50 [Suspect]
     Indication: ASTHMA
     Dosage: 1PUFF TWICE PER DAY
     Route: 055
  2. ALBUTEROL [Concomitant]
  3. EVISTA [Concomitant]
  4. SINGULAIR [Concomitant]
  5. PROTONIX [Concomitant]

REACTIONS (2)
  - DRY MOUTH [None]
  - DYSPNOEA [None]
